FAERS Safety Report 15153787 (Version 4)
Quarter: 2019Q2

REPORT INFORMATION
  Report Type: Spontaneous
  Country: JP (occurrence: JP)
  Receive Date: 20180717
  Receipt Date: 20190529
  Transmission Date: 20190711
  Serious: Yes (Hospitalization, Other)
  Sender: FDA-Public Use
  Company Number: JP-PFIZER INC-2018280949

PATIENT
  Age: 48 Year
  Sex: Male

DRUGS (4)
  1. CLOTIAZEPAM [Suspect]
     Active Substance: CLOTIAZEPAM
     Indication: DEPRESSION
     Dosage: 5 MG, UNK
     Route: 048
     Dates: start: 2015, end: 2017
  2. SULPRIDE [Suspect]
     Active Substance: SULPIRIDE
     Indication: DEPRESSION
     Dosage: UNK
     Route: 048
     Dates: start: 201702, end: 2017
  3. ETIZOLAM [Suspect]
     Active Substance: ETIZOLAM
     Indication: DEPRESSION
     Dosage: 0.25 MG, UNK
     Route: 048
     Dates: start: 2015, end: 2017
  4. TRIAZOLAM. [Suspect]
     Active Substance: TRIAZOLAM
     Indication: DEPRESSION
     Dosage: UNK
     Route: 048
     Dates: start: 2015, end: 2017

REACTIONS (2)
  - Drug reaction with eosinophilia and systemic symptoms [Unknown]
  - Hepatitis B reactivation [Unknown]
